FAERS Safety Report 13190332 (Version 4)
Quarter: 2018Q4

REPORT INFORMATION
  Report Type: Spontaneous
  Country: JP (occurrence: JP)
  Receive Date: 20170206
  Receipt Date: 20181011
  Transmission Date: 20190204
  Serious: Yes (Hospitalization, Other)
  Sender: FDA-Public Use
  Company Number: JP-MALLINCKRODT-T201505164

PATIENT
  Age: 63 Year
  Sex: Male
  Weight: 65 kg

DRUGS (67)
  1. METHADONE [Suspect]
     Active Substance: METHADONE HYDROCHLORIDE
     Dosage: 35MG DAILY DOSE
     Route: 048
     Dates: start: 20150929, end: 20151227
  2. DEXART [Concomitant]
     Active Substance: DEXAMETHASONE SODIUM PHOSPHATE
     Dosage: 6.6 MG, UNK
     Route: 051
     Dates: start: 20151117, end: 20151117
  3. DEXART [Concomitant]
     Active Substance: DEXAMETHASONE SODIUM PHOSPHATE
     Dosage: 6.6 MG, UNK
     Route: 051
     Dates: start: 20160202, end: 20160202
  4. DEXART [Concomitant]
     Active Substance: DEXAMETHASONE SODIUM PHOSPHATE
     Dosage: 6.6 MG, UNK
     Route: 051
     Dates: start: 20160329, end: 20160329
  5. ISOVORIN [Concomitant]
     Active Substance: LEUCOVORIN CALCIUM
     Dosage: 350 MG, UNK
     Route: 051
     Dates: start: 20151117, end: 20151117
  6. ELPLAT [Concomitant]
     Active Substance: OXALIPLATIN
     Indication: PRODUCT USED FOR UNKNOWN INDICATION
     Dosage: 140 MG, UNK
     Route: 051
     Dates: start: 20151102, end: 20151102
  7. ISOTONIC SODIUM CHLORIDE SOLUTION [Concomitant]
     Active Substance: SODIUM CHLORIDE
     Indication: PRODUCT USED FOR UNKNOWN INDICATION
     Dosage: 65 ML, UNK
     Route: 051
     Dates: start: 20151102, end: 20151102
  8. 5-FU [Concomitant]
     Active Substance: FLUOROURACIL
     Dosage: 700 MG, UNK
     Route: 051
     Dates: start: 20160329, end: 20160329
  9. METHADONE [Suspect]
     Active Substance: METHADONE HYDROCHLORIDE
     Dosage: 5 MG ONE TIME DOSE (15 MG DAILY DOSE)
     Route: 048
     Dates: start: 20160112, end: 20160314
  10. OXYNORM [Concomitant]
     Active Substance: OXYCODONE HYDROCHLORIDE
     Indication: ANALGESIC THERAPY
     Dosage: 10 MG, PRN
     Route: 048
     Dates: start: 20150913
  11. DEXART [Concomitant]
     Active Substance: DEXAMETHASONE SODIUM PHOSPHATE
     Indication: PRODUCT USED FOR UNKNOWN INDICATION
     Dosage: 6.6 MG, UNK
     Route: 051
     Dates: start: 20151102, end: 20151102
  12. POLARAMINE [Concomitant]
     Active Substance: DEXCHLORPHENIRAMINE MALEATE
     Dosage: 5 MG, UNK
     Route: 051
     Dates: start: 20160329, end: 20160329
  13. ALOXI [Concomitant]
     Active Substance: PALONOSETRON HYDROCHLORIDE
     Indication: PRODUCT USED FOR UNKNOWN INDICATION
     Dosage: 0.75 MG, UNK
     Route: 051
     Dates: start: 20151102, end: 20151102
  14. ALOXI [Concomitant]
     Active Substance: PALONOSETRON HYDROCHLORIDE
     Dosage: 0.75 MG, UNK
     Route: 051
     Dates: start: 20160510, end: 20160510
  15. HEPARIN SODIUM. [Concomitant]
     Active Substance: HEPARIN SODIUM
     Indication: PRODUCT USED FOR UNKNOWN INDICATION
     Dosage: 2500 IU
     Route: 051
     Dates: start: 20151102, end: 20151103
  16. LINOLOSAL [Concomitant]
     Active Substance: BETAMETHASONE SODIUM PHOSPHATE
     Indication: ANALGESIC THERAPY
     Dosage: 2 MG, UNK
     Route: 051
     Dates: start: 20151111, end: 20151111
  17. CELECOX [Concomitant]
     Active Substance: CELECOXIB
     Indication: PRODUCT USED FOR UNKNOWN INDICATION
     Dosage: 200 MG
     Route: 048
     Dates: start: 20160531
  18. LIDOCAINE. [Concomitant]
     Active Substance: LIDOCAINE
     Indication: ANALGESIC THERAPY
     Dosage: 10 ML, UNK
     Route: 051
     Dates: start: 20151111, end: 20151111
  19. METHADONE [Suspect]
     Active Substance: METHADONE HYDROCHLORIDE
     Dosage: 10 MG ONE TIME DOSE (30 MG DAILY DOSE)
     Route: 048
     Dates: start: 20151228, end: 20160111
  20. NEXIUM [Concomitant]
     Active Substance: ESOMEPRAZOLE MAGNESIUM
     Indication: PRODUCT USED FOR UNKNOWN INDICATION
     Dosage: 20 MG, UNK
     Route: 048
     Dates: start: 20151110
  21. GLUCOSE [Concomitant]
     Active Substance: DEXTROSE
     Indication: PRODUCT USED FOR UNKNOWN INDICATION
     Dosage: 1000 ML, UNK
     Route: 051
     Dates: start: 20151102, end: 20151102
  22. POLARAMINE [Concomitant]
     Active Substance: DEXCHLORPHENIRAMINE MALEATE
     Dosage: 5 MG, UNK
     Route: 051
     Dates: start: 20151117, end: 20151117
  23. POLARAMINE [Concomitant]
     Active Substance: DEXCHLORPHENIRAMINE MALEATE
     Dosage: 5 MG, UNK
     Route: 051
     Dates: start: 20160202, end: 20160202
  24. ELPLAT [Concomitant]
     Active Substance: OXALIPLATIN
     Dosage: 140 MG, UNK
     Route: 051
     Dates: start: 20160329, end: 20160329
  25. HEPARIN SODIUM. [Concomitant]
     Active Substance: HEPARIN SODIUM
     Dosage: 2500 IU
     Route: 051
     Dates: start: 20160202, end: 20160203
  26. LYRICA [Concomitant]
     Active Substance: PREGABALIN
     Dosage: 50 MG, UNK
     Route: 048
     Dates: start: 20160301, end: 20160530
  27. LONSURF [Concomitant]
     Active Substance: TIPIRACIL HYDROCHLORIDE\TRIFLURIDINE
     Indication: PRODUCT USED FOR UNKNOWN INDICATION
     Dosage: 120 MG, UNK
     Route: 048
     Dates: end: 20150916
  28. GLUCOSE [Concomitant]
     Active Substance: DEXTROSE
     Dosage: 1000 ML, UNK
     Route: 051
     Dates: start: 20151117, end: 20151117
  29. DEXART [Concomitant]
     Active Substance: DEXAMETHASONE SODIUM PHOSPHATE
     Dosage: 6.6 MG, UNK
     Route: 051
     Dates: start: 20160510, end: 20160510
  30. ELPLAT [Concomitant]
     Active Substance: OXALIPLATIN
     Dosage: 140 MG, UNK
     Route: 051
     Dates: start: 20151117, end: 20151117
  31. ELPLAT [Concomitant]
     Active Substance: OXALIPLATIN
     Dosage: 140 MG, UNK
     Route: 051
     Dates: start: 20160510, end: 20160510
  32. ELPLAT [Concomitant]
     Active Substance: OXALIPLATIN
     Dosage: 140 MG, UNK
     Route: 051
     Dates: start: 20160614, end: 20160614
  33. 5-FU [Concomitant]
     Active Substance: FLUOROURACIL
     Dosage: 4200 MG, UNK
     Route: 051
     Dates: start: 20160614, end: 20160616
  34. LYRICA [Concomitant]
     Active Substance: PREGABALIN
     Indication: ANALGESIC THERAPY
     Dosage: 150 MG, UNK
     Route: 048
     Dates: end: 20150918
  35. POLARAMINE [Concomitant]
     Active Substance: DEXCHLORPHENIRAMINE MALEATE
     Indication: PRODUCT USED FOR UNKNOWN INDICATION
     Dosage: 5 MG, UNK
     Route: 051
     Dates: start: 20151102, end: 20151102
  36. ALOXI [Concomitant]
     Active Substance: PALONOSETRON HYDROCHLORIDE
     Dosage: 0.75 MG, UNK
     Route: 051
     Dates: start: 20160202, end: 20160202
  37. ALOXI [Concomitant]
     Active Substance: PALONOSETRON HYDROCHLORIDE
     Dosage: 0.75 MG, UNK
     Route: 051
     Dates: start: 20160329, end: 20160329
  38. ISOVORIN [Concomitant]
     Active Substance: LEUCOVORIN CALCIUM
     Indication: PRODUCT USED FOR UNKNOWN INDICATION
     Dosage: 350 MG, UNK
     Route: 051
     Dates: start: 20151102, end: 20151102
  39. ISOVORIN [Concomitant]
     Active Substance: LEUCOVORIN CALCIUM
     Dosage: 350 MG, UNK
     Route: 051
     Dates: start: 20160329, end: 20160329
  40. ELPLAT [Concomitant]
     Active Substance: OXALIPLATIN
     Dosage: 140 MG, UNK
     Route: 051
     Dates: start: 20160202, end: 20160202
  41. 5-FU [Concomitant]
     Active Substance: FLUOROURACIL
     Dosage: 700 MG, UNK
     Route: 051
     Dates: start: 20151117, end: 20151117
  42. 5-FU [Concomitant]
     Active Substance: FLUOROURACIL
     Dosage: 2100 MG, UNK
     Route: 051
     Dates: start: 20160202, end: 20160202
  43. 5-FU [Concomitant]
     Active Substance: FLUOROURACIL
     Dosage: 4200 MG, UNK
     Route: 051
     Dates: start: 20160510, end: 20160512
  44. 5-FU [Concomitant]
     Active Substance: FLUOROURACIL
     Dosage: 700 MG, UNK
     Route: 051
     Dates: start: 20160614, end: 20160614
  45. HEPARIN SODIUM. [Concomitant]
     Active Substance: HEPARIN SODIUM
     Dosage: 2500 IU
     Route: 051
     Dates: start: 20151117, end: 20151118
  46. METHADONE [Suspect]
     Active Substance: METHADONE HYDROCHLORIDE
     Dosage: 20MG DAILY DOSE
     Route: 048
     Dates: start: 20160315, end: 20160510
  47. LEVOFLOXACIN. [Concomitant]
     Active Substance: LEVOFLOXACIN
     Indication: PRODUCT USED FOR UNKNOWN INDICATION
     Dosage: 500 MG, UNK
     Route: 048
     Dates: start: 20150918, end: 20150925
  48. LOXOPROFEN SODIUM [Concomitant]
     Active Substance: LOXOPROFEN SODIUM
     Indication: ANALGESIC THERAPY
     Dosage: 180 MG, UNK
     Route: 048
     Dates: start: 20151027, end: 20160329
  49. DEXART [Concomitant]
     Active Substance: DEXAMETHASONE SODIUM PHOSPHATE
     Dosage: 6.6 MG, UNK
     Route: 051
     Dates: start: 20160614, end: 20160614
  50. POLARAMINE [Concomitant]
     Active Substance: DEXCHLORPHENIRAMINE MALEATE
     Dosage: 5 MG, UNK
     Route: 051
     Dates: start: 20160510, end: 20160510
  51. ALOXI [Concomitant]
     Active Substance: PALONOSETRON HYDROCHLORIDE
     Dosage: 0.75 MG, UNK
     Route: 051
     Dates: start: 20151117, end: 20151117
  52. 5-FU [Concomitant]
     Active Substance: FLUOROURACIL
     Dosage: 2100 MG, UNK
     Route: 051
     Dates: start: 20151102, end: 20151103
  53. 5-FU [Concomitant]
     Active Substance: FLUOROURACIL
     Dosage: 700 MG, UNK
     Route: 051
     Dates: start: 20160202, end: 20160202
  54. GLUCOSE [Concomitant]
     Active Substance: DEXTROSE
     Dosage: 600 ML, UNK
     Route: 051
     Dates: start: 20160202, end: 20160202
  55. ISOVORIN [Concomitant]
     Active Substance: LEUCOVORIN CALCIUM
     Dosage: 350 MG, UNK
     Route: 051
     Dates: start: 20160202, end: 20160202
  56. ISOVORIN [Concomitant]
     Active Substance: LEUCOVORIN CALCIUM
     Dosage: 350 MG, UNK
     Route: 051
     Dates: start: 20160614, end: 20160614
  57. 5-FU [Concomitant]
     Active Substance: FLUOROURACIL
     Indication: PRODUCT USED FOR UNKNOWN INDICATION
     Dosage: 700 MG, UNK
     Route: 051
     Dates: start: 20151102, end: 20151102
  58. 5-FU [Concomitant]
     Active Substance: FLUOROURACIL
     Dosage: 4200 MG, UNK
     Route: 051
     Dates: start: 20160329, end: 20160331
  59. 5-FU [Concomitant]
     Active Substance: FLUOROURACIL
     Dosage: 700 MG, UNK
     Route: 051
     Dates: start: 20160510, end: 20160510
  60. METHADONE [Suspect]
     Active Substance: METHADONE HYDROCHLORIDE
     Indication: CANCER PAIN
     Dosage: 10 MG ONE TIME DOSE (30 MG DAILY DOSE)
     Route: 048
     Dates: start: 20150914, end: 20150929
  61. METHADONE [Suspect]
     Active Substance: METHADONE HYDROCHLORIDE
     Dosage: 25MG DAILY DOSE
     Route: 048
     Dates: start: 20160511
  62. POLARAMINE [Concomitant]
     Active Substance: DEXCHLORPHENIRAMINE MALEATE
     Dosage: 5 MG, UNK
     Route: 051
     Dates: start: 20160614, end: 20160614
  63. ALOXI [Concomitant]
     Active Substance: PALONOSETRON HYDROCHLORIDE
     Dosage: 0.75 MG, UNK
     Route: 051
     Dates: start: 20160614, end: 20160614
  64. ISOVORIN [Concomitant]
     Active Substance: LEUCOVORIN CALCIUM
     Dosage: 350 MG, UNK
     Route: 051
     Dates: start: 20160510, end: 20160510
  65. ISOTONIC SODIUM CHLORIDE SOLUTION [Concomitant]
     Active Substance: SODIUM CHLORIDE
     Dosage: 65 ML, UNK
     Route: 051
     Dates: start: 20151117, end: 20151117
  66. ISOTONIC SODIUM CHLORIDE SOLUTION [Concomitant]
     Active Substance: SODIUM CHLORIDE
     Dosage: 200 ML, UNK
     Route: 051
     Dates: start: 20151211, end: 20151217
  67. 5-FU [Concomitant]
     Active Substance: FLUOROURACIL
     Dosage: 2100 MG, UNK
     Route: 051
     Dates: start: 20151117, end: 20151118

REACTIONS (13)
  - Pyrexia [Recovered/Resolved]
  - Dehydration [Recovered/Resolved]
  - Pneumonia [Recovered/Resolved]
  - Neutrophil count decreased [Recovered/Resolved]
  - Dehydration [Recovered/Resolved]
  - Pneumonia pneumococcal [Recovering/Resolving]
  - Cough [Not Recovered/Not Resolved]
  - Constipation [Recovering/Resolving]
  - Skin erosion [Not Recovered/Not Resolved]
  - Pneumonia [Recovering/Resolving]
  - Pneumonia [Recovered/Resolved]
  - Nausea [Recovering/Resolving]
  - Somnolence [Recovered/Resolved]

NARRATIVE: CASE EVENT DATE: 20150915
